FAERS Safety Report 11604964 (Version 2)
Quarter: 2015Q4

REPORT INFORMATION
  Report Type: Report from Study
  Country: US (occurrence: US)
  Receive Date: 20151007
  Receipt Date: 20151021
  Transmission Date: 20160304
  Serious: Yes (Hospitalization, Other)
  Sender: FDA-Public Use
  Company Number: US-AMGEN-USASP2011054815

PATIENT
  Age: 55 Year
  Sex: Male

DRUGS (11)
  1. ENBREL [Suspect]
     Active Substance: ETANERCEPT
     Indication: PSORIASIS
     Dosage: 50 MG, QWK
     Route: 058
     Dates: start: 2000
  2. ENBREL [Suspect]
     Active Substance: ETANERCEPT
     Indication: PSORIATIC ARTHROPATHY
     Dosage: UNK
     Route: 058
  3. HUMIRA [Concomitant]
     Active Substance: ADALIMUMAB
  4. FOLIC ACID. [Concomitant]
     Active Substance: FOLIC ACID
     Dosage: UNK
  5. PERCOCET                           /00446701/ [Concomitant]
     Active Substance: ACETAMINOPHEN\OXYCODONE HYDROCHLORIDE\OXYCODONE TEREPHTHALATE
     Dosage: 2.5-325UNK
  6. ALLOPURINOL. [Concomitant]
     Active Substance: ALLOPURINOL
     Dosage: 300 MG, UNK
  7. OXYCONTIN [Concomitant]
     Active Substance: OXYCODONE HYDROCHLORIDE
     Dosage: 10 MG, UNK
  8. MELOXICAM. [Concomitant]
     Active Substance: MELOXICAM
     Dosage: 7.5 MG, UNK
  9. AMITRIPTYLINE [Concomitant]
     Active Substance: AMITRIPTYLINE
     Dosage: 150 MG, UNK
  10. NORTRIPTYLIN [Concomitant]
     Active Substance: NORTRIPTYLINE
     Dosage: 25 MG, UNK
  11. COLCHICINE. [Concomitant]
     Active Substance: COLCHICINE
     Dosage: 0.6 MG, UNK

REACTIONS (28)
  - Pain in extremity [Not Recovered/Not Resolved]
  - Neuralgia [Not Recovered/Not Resolved]
  - Surgery [Recovered/Resolved]
  - Spinal laminectomy [Unknown]
  - Nasopharyngitis [Recovered/Resolved]
  - Gout [Recovered/Resolved]
  - Hypoaesthesia [Not Recovered/Not Resolved]
  - Injection site bruising [Recovered/Resolved]
  - Psoriasis [Recovered/Resolved]
  - Osteonecrosis [Not Recovered/Not Resolved]
  - Hip arthroplasty [Recovered/Resolved]
  - Back disorder [Not Recovered/Not Resolved]
  - Joint effusion [Recovered/Resolved]
  - Musculoskeletal stiffness [Not Recovered/Not Resolved]
  - Astigmatism [Not Recovered/Not Resolved]
  - Localised infection [Recovered/Resolved]
  - Cataract [Recovered/Resolved]
  - Exostosis [Not Recovered/Not Resolved]
  - Arthralgia [Recovered/Resolved]
  - Intervertebral disc degeneration [Unknown]
  - Back pain [Not Recovered/Not Resolved]
  - Headache [Recovered/Resolved]
  - Abdominal discomfort [Recovered/Resolved]
  - Vision blurred [Not Recovered/Not Resolved]
  - Decreased appetite [Recovered/Resolved]
  - Sinusitis [Recovered/Resolved]
  - Sinus congestion [Recovered/Resolved]
  - Limb discomfort [Unknown]

NARRATIVE: CASE EVENT DATE: 2010
